FAERS Safety Report 5525926-7 (Version None)
Quarter: 2007Q4

REPORT INFORMATION
  Report Type: 
  Country: None (occurrence: None)
  Receive Date: 20071126
  Receipt Date: 20071114
  Transmission Date: 20080405
  Serious: Yes (Other)
  Sender: FDA-Public Use
  Company Number: US-PFIZER INC-2007096350

PATIENT
  Sex: Female
  Weight: 48.1 kg

DRUGS (3)
  1. DETROL LA [Suspect]
     Indication: URINARY INCONTINENCE
  2. ANTIGLAUCOMA PREPARATIONS AND MIOTICS [Suspect]
     Indication: GLAUCOMA
  3. LAMICTAL [Suspect]
     Indication: CONVULSION

REACTIONS (5)
  - CONVULSION [None]
  - DIZZINESS [None]
  - EYE IRRITATION [None]
  - FATIGUE [None]
  - GLAUCOMA [None]
